FAERS Safety Report 11333267 (Version 2)
Quarter: 2015Q3

REPORT INFORMATION
  Report Type: Spontaneous
  Country: US (occurrence: US)
  Receive Date: 20150803
  Receipt Date: 20150821
  Transmission Date: 20151125
  Serious: No
  Sender: FDA-Public Use
  Company Number: US-ELI_LILLY_AND_COMPANY-US200712002776

PATIENT
  Age: 85 Year
  Sex: Female

DRUGS (9)
  1. CYMBALTA [Suspect]
     Active Substance: DULOXETINE HYDROCHLORIDE
     Indication: BIPOLAR DISORDER
     Dosage: 30 MG, UNK
     Dates: start: 2007
  2. SEROQUEL [Concomitant]
     Active Substance: QUETIAPINE FUMARATE
  3. PROTONIX [Concomitant]
     Active Substance: PANTOPRAZOLE SODIUM
  4. ATIVAN [Concomitant]
     Active Substance: LORAZEPAM
  5. THYROID [Concomitant]
     Active Substance: LEVOTHYROXINE\LIOTHYRONINE
  6. ZYPREXA [Suspect]
     Active Substance: OLANZAPINE
     Dosage: 1 D/F, UNK
  7. NEURONTIN [Concomitant]
     Active Substance: GABAPENTIN
  8. LIBRIUM [Concomitant]
     Active Substance: CHLORDIAZEPOXIDE HYDROCHLORIDE
  9. MACRODANTIN [Concomitant]
     Active Substance: NITROFURANTOIN

REACTIONS (7)
  - Compulsions [Not Recovered/Not Resolved]
  - Trismus [Not Recovered/Not Resolved]
  - Drug ineffective [Not Recovered/Not Resolved]
  - Feeling abnormal [Unknown]
  - Insomnia [Not Recovered/Not Resolved]
  - Dementia [Not Recovered/Not Resolved]
  - Abnormal behaviour [Not Recovered/Not Resolved]

NARRATIVE: CASE EVENT DATE: 2007
